FAERS Safety Report 10484031 (Version 1)
Quarter: 2014Q3

REPORT INFORMATION
  Report Type: Spontaneous
  Country: US (occurrence: None)
  Receive Date: 20140929
  Receipt Date: 20140929
  Transmission Date: 20150326
  Serious: No
  Sender: FDA-Public Use
  Company Number: None

PATIENT
  Age: 59 Year
  Sex: Female
  Weight: 68.04 kg

DRUGS (1)
  1. LEVAQUIN [Suspect]
     Active Substance: LEVOFLOXACIN
     Indication: DIVERTICULITIS
     Dosage: 1/DAY ONCE DAILY BY MOUTH
     Route: 048
     Dates: start: 20140920, end: 20140924

REACTIONS (6)
  - Myalgia [None]
  - Pain [None]
  - Nightmare [None]
  - Tinnitus [None]
  - Insomnia [None]
  - Headache [None]

NARRATIVE: CASE EVENT DATE: 20140924
